FAERS Safety Report 17850350 (Version 2)
Quarter: 2020Q2

REPORT INFORMATION
  Report Type: Spontaneous
  Country: US (occurrence: US)
  Receive Date: 20200602
  Receipt Date: 20200622
  Transmission Date: 20200714
  Serious: No
  Sender: FDA-Public Use
  Company Number: US-TORRENT-00010249

PATIENT
  Sex: Female
  Weight: 63 kg

DRUGS (1)
  1. ZOLPIDEM TARTRATE TABLETS [Suspect]
     Active Substance: ZOLPIDEM TARTRATE
     Indication: SLEEP DISORDER
     Dosage: 5 MG BY BREAKING THE 10 MG PILL IN HALF

REACTIONS (3)
  - Nausea [Unknown]
  - Headache [Unknown]
  - Wrong technique in product usage process [Unknown]
